FAERS Safety Report 8334502 (Version 3)
Quarter: 2012Q4

REPORT INFORMATION
  Report Type: 
  Country: US (occurrence: US)
  Receive Date: 20120112
  Receipt Date: 20121031
  Transmission Date: 20130627
  Serious: Yes (Other)
  Sender: FDA-Public Use
  Company Number: US-ROCHE-792838

PATIENT
  Age: 21 Year
  Sex: Male
  Weight: 57.66 kg

DRUGS (5)
  1. ACCUTANE [Suspect]
     Indication: ACNE
     Route: 048
     Dates: start: 199904, end: 199906
  2. ACCUTANE [Suspect]
     Route: 048
     Dates: start: 20000106, end: 20020215
  3. ACCUTANE [Suspect]
     Route: 048
  4. ACCUTANE [Suspect]
     Route: 048
     Dates: start: 20021223, end: 20030326
  5. ACCUTANE [Suspect]
     Dosage: 80 mg every other day and 60 mg every other day
     Route: 048
     Dates: start: 20030326, end: 20030407

REACTIONS (12)
  - Colitis ulcerative [Unknown]
  - Crohn^s disease [Unknown]
  - Inflammatory bowel disease [Unknown]
  - Irritable bowel syndrome [Unknown]
  - Stress [Unknown]
  - Anxiety [Unknown]
  - Blood triglycerides increased [Unknown]
  - Dry skin [Unknown]
  - Myalgia [Unknown]
  - Epistaxis [Unknown]
  - Vision blurred [Unknown]
  - Vocal cord disorder [Unknown]
